FAERS Safety Report 19878648 (Version 1)
Quarter: 2021Q3

REPORT INFORMATION
  Report Type: Spontaneous
  Country: US (occurrence: US)
  Receive Date: 20210924
  Receipt Date: 20210924
  Transmission Date: 20211014
  Serious: Yes (Other)
  Sender: FDA-Public Use
  Company Number: None

PATIENT
  Age: 54 Year
  Sex: Male

DRUGS (1)
  1. CABENUVA [Suspect]
     Active Substance: CABOTEGRAVIR\RILPIVIRINE
     Indication: ASYMPTOMATIC HIV INFECTION
     Dosage: OTHER FREQUENCY:MONTHLY;?
     Route: 030
     Dates: start: 20210625, end: 20210903

REACTIONS (2)
  - Injection site pain [None]
  - Injection site nodule [None]

NARRATIVE: CASE EVENT DATE: 20210903
